FAERS Safety Report 5574966-0 (Version None)
Quarter: 2007Q4

REPORT INFORMATION
  Report Type: 
  Country: None (occurrence: None)
  Receive Date: 20071227
  Receipt Date: 20071221
  Transmission Date: 20080405
  Serious: Yes (Hospitalization)
  Sender: FDA-Public Use
  Company Number: B0499726A

PATIENT
  Age: 57 Year
  Sex: Male
  Weight: 53 kg

DRUGS (13)
  1. ZEFIX [Suspect]
     Indication: HEPATIC CIRRHOSIS
     Dosage: 100MG PER DAY
     Route: 048
     Dates: start: 20071105, end: 20071210
  2. LIVACT [Concomitant]
     Indication: HEPATIC CIRRHOSIS
     Dosage: 8.3G PER DAY
     Route: 048
     Dates: start: 20071105
  3. FUROSEMIDE [Concomitant]
     Indication: ASCITES
     Dosage: 20MG PER DAY
     Route: 048
     Dates: start: 20071105
  4. ALDACTONE [Concomitant]
     Indication: ASCITES
     Dosage: 100MG PER DAY
     Route: 048
     Dates: start: 20071105
  5. URSO 250 [Concomitant]
     Indication: HEPATIC CIRRHOSIS
     Dosage: 600MG PER DAY
     Route: 048
     Dates: start: 20071105
  6. TAKEPRON [Concomitant]
     Dosage: 15MG PER DAY
     Route: 048
     Dates: start: 20071114
  7. MONILAC [Concomitant]
     Indication: HEPATIC CIRRHOSIS
     Dosage: 60ML PER DAY
     Route: 048
     Dates: start: 20071201
  8. KANAMYCIN [Concomitant]
     Route: 048
     Dates: start: 20071204
  9. AMOBAN [Concomitant]
     Indication: INSOMNIA
     Dosage: 7.5MG PER DAY
     Route: 048
     Dates: start: 20071204
  10. MAGLAX [Concomitant]
     Indication: CONSTIPATION
     Dosage: 990MG PER DAY
     Route: 048
     Dates: start: 20071207
  11. PRIMPERAN INJ [Concomitant]
     Indication: NAUSEA
     Dosage: 10MG PER DAY
     Route: 048
     Dates: start: 20071207, end: 20071210
  12. NEO-MINOPHAGEN C [Concomitant]
     Dosage: 100ML PER DAY
     Route: 042
     Dates: start: 20071105
  13. ADELAVIN [Concomitant]
     Dosage: 2ML PER DAY
     Dates: start: 20071105

REACTIONS (4)
  - DIABETES MELLITUS [None]
  - POLYDIPSIA [None]
  - POLYURIA [None]
  - THIRST [None]
